FAERS Safety Report 16134571 (Version 1)
Quarter: 2019Q1

REPORT INFORMATION
  Report Type: Report from Study
  Country: CA (occurrence: CA)
  Receive Date: 20190329
  Receipt Date: 20190329
  Transmission Date: 20190418
  Serious: Yes (Hospitalization)
  Sender: FDA-Public Use
  Company Number: CA-TAIHO ONCOLOGY  INC-EU-2019-00923

PATIENT
  Age: 69 Year
  Sex: Male

DRUGS (4)
  1. SYNTHROID [Concomitant]
     Active Substance: LEVOTHYROXINE SODIUM
  2. ELTROXIN [Concomitant]
     Active Substance: LEVOTHYROXINE
  3. LONSURF [Suspect]
     Active Substance: TIPIRACIL HYDROCHLORIDE\TRIFLURIDINE
     Indication: COLORECTAL CANCER METASTATIC
     Dosage: CYCLE 1 ENDED ON 15/JAN/2019?CURRENT CYCLE 2 INTERRUPTED ON 01/FEB/2019, DELAYED AND STARTED ON 18/M
     Route: 048
     Dates: start: 20190104
  4. XARELTO [Concomitant]
     Active Substance: RIVAROXABAN

REACTIONS (1)
  - Venous occlusion [Not Recovered/Not Resolved]

NARRATIVE: CASE EVENT DATE: 20190204
